FAERS Safety Report 11255409 (Version 1)
Quarter: 2015Q3

REPORT INFORMATION
  Report Type: Spontaneous
  Country: US (occurrence: US)
  Receive Date: 20150709
  Receipt Date: 20150709
  Transmission Date: 20151125
  Serious: No
  Sender: FDA-Public Use
  Company Number: US-SA-2015SA050743

PATIENT
  Age: 67 Year
  Sex: Female

DRUGS (1)
  1. AFREZZA [Suspect]
     Active Substance: INSULIN HUMAN
     Indication: DIABETES MELLITUS
     Dosage: DOSAGE: 1 CARTRIDGE WITH EACH MEAL?START DATE: APPROX 2 WEEKS AGO
     Route: 065

REACTIONS (1)
  - Blood glucose abnormal [Recovered/Resolved]
